FAERS Safety Report 5324241-4 (Version None)
Quarter: 2007Q2

REPORT INFORMATION
  Report Type: 
  Country: None (occurrence: None)
  Receive Date: 20070508
  Receipt Date: 20070423
  Transmission Date: 20071010
  Serious: Yes (Hospitalization)
  Sender: FDA-Public Use
  Company Number: 2007000623

PATIENT
  Age: 77 Year
  Sex: Female
  Weight: 61.6892 kg

DRUGS (6)
  1. ERLOTINIB (TABLET) [Suspect]
     Indication: SQUAMOUS CELL CARCINOMA
     Dosage: 1 TABLET (QD), ORAL
     Route: 048
     Dates: start: 20070228
  2. LORTAB [Concomitant]
  3. PRILOSEC [Concomitant]
  4. ASPIRIN [Concomitant]
  5. PLAVIX [Concomitant]
  6. DIFLUXAN (FLUCONAZOLE) [Concomitant]

REACTIONS (9)
  - ATRIAL FIBRILLATION [None]
  - BLOOD CREATINE PHOSPHOKINASE ABNORMAL [None]
  - DEHYDRATION [None]
  - HAEMATOCRIT DECREASED [None]
  - HAEMOGLOBIN DECREASED [None]
  - LOSS OF CONSCIOUSNESS [None]
  - MUCOSAL INFLAMMATION [None]
  - SYNCOPE [None]
  - URINARY TRACT INFECTION [None]
